FAERS Safety Report 26091404 (Version 1)
Quarter: 2025Q4

REPORT INFORMATION
  Report Type: Spontaneous
  Country: GB (occurrence: GB)
  Receive Date: 20251126
  Receipt Date: 20251126
  Transmission Date: 20260118
  Serious: Yes (Other)
  Sender: CIPLA
  Company Number: GB-MHRA-TPP29077766C12007539YC1762771167060

PATIENT

DRUGS (18)
  1. DAPAGLIFLOZIN [Suspect]
     Active Substance: DAPAGLIFLOZIN
     Indication: Ill-defined disorder
     Dosage: 10 MILLIGRAM, QD (TABLET)
     Route: 065
     Dates: start: 20240326, end: 20251110
  2. LOSEC [Concomitant]
     Active Substance: OMEPRAZOLE
     Indication: Ill-defined disorder
     Dosage: 1 DOSAGE FORM, QD (TAKE ONE DAILY)
     Route: 065
     Dates: start: 20251017
  3. FLUCONAZOLE [Concomitant]
     Active Substance: FLUCONAZOLE
     Indication: Ill-defined disorder
     Dosage: 2 DOSAGE FORM, QD (TO TAKE 2 CAPSULES ONCE PER DAY (400MG PER DAY)...)
     Route: 065
     Dates: start: 20251110
  4. ALENDRONIC ACID [Concomitant]
     Active Substance: ALENDRONIC ACID
     Indication: Ill-defined disorder
     Dosage: 1 DOSAGE FORM, QWK (TAKE ONE WEEKLY)
     Route: 065
     Dates: start: 20231130
  5. BISOPROLOL [Concomitant]
     Active Substance: BISOPROLOL
     Indication: Ill-defined disorder
     Dosage: 1 DOSAGE FORM, QD (TAKE ONE DAILY)
     Route: 065
     Dates: start: 20231130
  6. CALCIUM CARBONATE [Concomitant]
     Active Substance: CALCIUM CARBONATE
     Indication: Ill-defined disorder
     Dosage: 1 DOSAGE FORM, BID
     Route: 065
     Dates: start: 20231130
  7. FLUOXETINE [Concomitant]
     Active Substance: FLUOXETINE HYDROCHLORIDE
     Indication: Ill-defined disorder
     Dosage: 1 DOSAGE FORM, QD (TAKE ONE DAILY)
     Route: 065
     Dates: start: 20231130
  8. FUROSEMIDE [Concomitant]
     Active Substance: FUROSEMIDE
     Indication: Ill-defined disorder
     Dosage: 1 DOSAGE FORM, QD (TAKE ONE DAILY)
     Route: 065
     Dates: start: 20231130
  9. ACETAMINOPHEN [Concomitant]
     Active Substance: ACETAMINOPHEN
     Indication: Ill-defined disorder
     Dosage: UNK (TAKE ONE OR TWO UP TO FOUR TIMES DAILY WHEN REQ...)
     Route: 065
     Dates: start: 20231130
  10. METHENAMINE HIPPURATE [Concomitant]
     Active Substance: METHENAMINE HIPPURATE
     Indication: Ill-defined disorder
     Dosage: 1 DOSAGE FORM, BID (TAKE ONE TWICE DAILY)
     Route: 065
     Dates: start: 20240221
  11. LIPITOR [Concomitant]
     Active Substance: ATORVASTATIN CALCIUM
     Indication: Ill-defined disorder
     Dosage: 1 DOSAGE FORM, QD (TAKE ONE DAILY)
     Route: 065
     Dates: start: 20240502
  12. METFORMIN [Concomitant]
     Active Substance: METFORMIN HYDROCHLORIDE
     Indication: Ill-defined disorder
     Dosage: 1 DOSAGE FORM, TID (TAKE ONE TABLET THREE TIMES DAILY - DOSE TO BE...)
     Route: 065
     Dates: start: 20250219
  13. MORPHINE SULFATE [Concomitant]
     Active Substance: MORPHINE SULFATE
     Indication: Ill-defined disorder
     Dosage: 1 DOSAGE FORM, BID
     Route: 065
     Dates: start: 20250221
  14. PREDNISOLONE [Concomitant]
     Active Substance: PREDNISOLONE
     Indication: Ill-defined disorder
     Dosage: UNK (TAKE FOUR DAILY WITH A 5MG TABLET (9MG ONCE DAI...)
     Route: 065
     Dates: start: 20250221
  15. OMEPRAZOLE [Concomitant]
     Active Substance: OMEPRAZOLE
     Indication: Ill-defined disorder
     Dosage: 1 DOSAGE FORM, QD (TAKE ONE DAILY)
     Route: 065
     Dates: start: 20250318
  16. RIVAROXABAN [Concomitant]
     Active Substance: RIVAROXABAN
     Indication: Ill-defined disorder
     Dosage: 1 DOSAGE FORM (ONE TABLET TO BE TAKEN DAILY WITH FOOD)
     Route: 065
     Dates: start: 20250327
  17. TAMSULOSIN [Concomitant]
     Active Substance: TAMSULOSIN
     Indication: Ill-defined disorder
     Dosage: 1 DOSAGE FORM, QD (TAKE ONE DAILY)
     Route: 065
     Dates: start: 20250501
  18. TIRZEPATIDE [Concomitant]
     Active Substance: TIRZEPATIDE
     Indication: Ill-defined disorder
     Dosage: 1 DOSAGE FORM, QWK (ONE DOSE WEEKLY)
     Route: 065
     Dates: start: 20250728

REACTIONS (2)
  - Systemic candida [Recovering/Resolving]
  - Sepsis [Recovering/Resolving]
